FAERS Safety Report 11385808 (Version 1)
Quarter: 2015Q3

REPORT INFORMATION
  Report Type: Spontaneous
  Country: US (occurrence: None)
  Receive Date: 20150813
  Receipt Date: 20150813
  Transmission Date: 20151125
  Serious: Yes (Life-Threatening, Other)
  Sender: FDA-Public Use
  Company Number: None

PATIENT
  Age: 53 Year
  Sex: Female
  Weight: 82 kg

DRUGS (6)
  1. ASPIRIN. [Concomitant]
     Active Substance: ASPIRIN
  2. ENOXAPARIN [Concomitant]
     Active Substance: ENOXAPARIN
  3. LISINOPRIL. [Concomitant]
     Active Substance: LISINOPRIL
  4. LEXISCAN [Suspect]
     Active Substance: REGADENOSON
     Indication: CARDIAC STRESS TEST
     Dosage: 0.4 MG/5 ML ?ONCE?INTRAVENOUS
     Route: 042
     Dates: start: 20150812, end: 20150812
  5. PANTOPRAZOLE [Concomitant]
     Active Substance: PANTOPRAZOLE SODIUM
  6. ACETAMINOPHEN. [Concomitant]
     Active Substance: ACETAMINOPHEN

REACTIONS (9)
  - Excessive eye blinking [None]
  - Unresponsive to stimuli [None]
  - Somnolence [None]
  - Blood pressure increased [None]
  - Posturing [None]
  - Electrocardiogram ST segment depression [None]
  - Eye movement disorder [None]
  - Drooling [None]
  - Tachycardia [None]

NARRATIVE: CASE EVENT DATE: 20150812
